FAERS Safety Report 26139228 (Version 1)
Quarter: 2025Q4

REPORT INFORMATION
  Report Type: Spontaneous
  Country: US (occurrence: US)
  Receive Date: 20251210
  Receipt Date: 20251210
  Transmission Date: 20260117
  Serious: No
  Sender: AXSOME THERAPEUTICS
  Company Number: US-AXS-AXS202511-001977

PATIENT
  Sex: Female

DRUGS (1)
  1. SYMBRAVO [Suspect]
     Active Substance: MELOXICAM\RIZATRIPTAN BENZOATE
     Indication: Migraine
     Route: 065

REACTIONS (2)
  - Tachycardia [Recovered/Resolved]
  - Palpitations [Recovered/Resolved]
